FAERS Safety Report 16161097 (Version 4)
Quarter: 2020Q2

REPORT INFORMATION
  Report Type: Spontaneous
  Country: FR (occurrence: FR)
  Receive Date: 20190405
  Receipt Date: 20200624
  Transmission Date: 20200713
  Serious: Yes (Death, Hospitalization, Other)
  Sender: FDA-Public Use
  Company Number: FR-AUROBINDO-AUR-APL-2019-016847

PATIENT
  Age: 79 Year
  Sex: Male

DRUGS (6)
  1. PREVISCAN [Concomitant]
     Indication: GENERALISED OEDEMA
     Dosage: UNK
     Route: 048
  2. LANSOPRAZOLE. [Concomitant]
     Active Substance: LANSOPRAZOLE
     Indication: GENERALISED OEDEMA
     Dosage: 30 MILLIGRAM, ONCE A DAY
     Route: 048
  3. BISOPROLOL ARROW [Concomitant]
     Active Substance: BISOPROLOL
     Indication: GENERALISED OEDEMA
     Dosage: 1 DOSAGE FORM, ONCE A DAY
     Route: 048
  4. ESIDREX [Suspect]
     Active Substance: HYDROCHLOROTHIAZIDE
     Indication: GENERALISED OEDEMA
     Dosage: 25 MILLIGRAM, ONCE A DAY
     Route: 048
     Dates: start: 20190211, end: 20190214
  5. FUROSEMIDE. [Concomitant]
     Active Substance: FUROSEMIDE
     Indication: GENERALISED OEDEMA
     Dosage: 500 MILLIGRAM, ONCE A DAY
     Route: 048
  6. SPIRONOLACTONE ARROW FILM-COATED TABLET 25 MG [Suspect]
     Active Substance: SPIRONOLACTONE
     Indication: GENERALISED OEDEMA
     Dosage: 25 MILLIGRAM, ONCE A DAY
     Route: 048
     Dates: start: 20190211, end: 20190214

REACTIONS (1)
  - Pancytopenia [Fatal]

NARRATIVE: CASE EVENT DATE: 20190215
